FAERS Safety Report 14330287 (Version 3)
Quarter: 2018Q1

REPORT INFORMATION
  Report Type: Report from Study
  Country: JP (occurrence: JP)
  Receive Date: 20171227
  Receipt Date: 20180322
  Transmission Date: 20180509
  Serious: Yes (Death, Hospitalization)
  Sender: FDA-Public Use
  Company Number: JP-B.I. PHARMACEUTICALS,INC./RIDGEFIELD-2017-NB-002050

PATIENT
  Age: 77 Year
  Sex: Male
  Weight: 60.6 kg

DRUGS (10)
  1. PREDONINE [Concomitant]
     Active Substance: PREDNISOLONE
     Indication: DERMATITIS EXFOLIATIVE
     Route: 065
     Dates: start: 20170411, end: 20170423
  2. MEROPENEM. [Concomitant]
     Active Substance: MEROPENEM
     Dates: start: 20170424, end: 20170424
  3. MAXIPIME [Concomitant]
     Active Substance: CEFEPIME HYDROCHLORIDE
     Indication: PRODUCT USED FOR UNKNOWN INDICATION
     Route: 065
     Dates: start: 20170406, end: 20170410
  4. CRAVIT [Concomitant]
     Active Substance: LEVOFLOXACIN
     Indication: GENERAL PHYSICAL HEALTH DETERIORATION
     Dates: start: 20170420, end: 20170420
  5. MEROPENEM. [Concomitant]
     Active Substance: MEROPENEM
     Dates: start: 20170422, end: 20170422
  6. MEROPENEM. [Concomitant]
     Active Substance: MEROPENEM
     Dates: start: 20170423, end: 20170423
  7. GRACEVIT [Concomitant]
     Active Substance: SITAFLOXACIN
     Indication: GENERAL PHYSICAL HEALTH DETERIORATION
     Route: 048
     Dates: start: 20170421, end: 20170423
  8. MEROPENEM. [Concomitant]
     Active Substance: MEROPENEM
     Indication: GENERAL PHYSICAL HEALTH DETERIORATION
     Dates: start: 20170421, end: 20170421
  9. AFATINIB [Suspect]
     Active Substance: AFATINIB
     Indication: LUNG ADENOCARCINOMA
     Route: 048
     Dates: start: 20170213, end: 20170406
  10. METHYLPREDNISOLONE NA SUCCINATE [Concomitant]
     Active Substance: METHYLPREDNISOLONE SODIUM SUCCINATE
     Indication: PRODUCT USED FOR UNKNOWN INDICATION
     Route: 065
     Dates: start: 20170406, end: 20170410

REACTIONS (6)
  - Disseminated intravascular coagulation [Fatal]
  - Malignant neoplasm progression [Fatal]
  - C-reactive protein increased [Unknown]
  - Decreased appetite [Recovering/Resolving]
  - Restlessness [Not Recovered/Not Resolved]
  - Infection [Not Recovered/Not Resolved]

NARRATIVE: CASE EVENT DATE: 20170406
